FAERS Safety Report 5158573-X (Version None)
Quarter: 2006Q4

REPORT INFORMATION
  Report Type: 
  Country: None (occurrence: None)
  Receive Date: 20061128
  Receipt Date: 20061108
  Transmission Date: 20070319
  Serious: Yes (Other)
  Sender: FDA-Public Use
  Company Number: CA-GLAXOSMITHKLINE-A0626948A

PATIENT
  Age: 53 Year
  Sex: Male

DRUGS (1)
  1. AQUAFRESH EXTREME CLEAN TOOTHPASTE TUBE [Suspect]
     Dates: start: 20060101

REACTIONS (12)
  - ASTHENIA [None]
  - BEDRIDDEN [None]
  - DYSGEUSIA [None]
  - FACIAL PALSY [None]
  - HYPOAESTHESIA [None]
  - LOSS OF CONSCIOUSNESS [None]
  - MALAISE [None]
  - PHARMACEUTICAL PRODUCT COMPLAINT [None]
  - SEDATION [None]
  - SWELLING FACE [None]
  - THERAPEUTIC AGENT TOXICITY [None]
  - VOMITING [None]
